FAERS Safety Report 20848030 (Version 2)
Quarter: 2022Q2

REPORT INFORMATION
  Report Type: Spontaneous
  Country: RO (occurrence: RO)
  Receive Date: 20220519
  Receipt Date: 20220524
  Transmission Date: 20220721
  Serious: Yes (Other)
  Sender: FDA-Public Use
  Company Number: RO-ROCHE-3081492

PATIENT
  Age: 64 Year
  Sex: Female

DRUGS (10)
  1. TRASTUZUMAB [Suspect]
     Active Substance: TRASTUZUMAB
     Indication: Invasive breast carcinoma
     Dosage: PERTUZUMAB SYSTEMIC THERAPY WAS INITIATED IN COMBINATION WITH TRASTUZUMAB AND DOCETAXEL FOR 5 MON
     Route: 065
  2. DOCETAXEL [Suspect]
     Active Substance: DOCETAXEL
     Indication: Breast cancer
     Dosage: PERTUZUMAB SYSTEMIC THERAPY WAS INITIATED IN COMBINATION WITH TRASTUZUMAB AND DOCETAXEL FOR 5 MON
     Route: 065
  3. DOCETAXEL [Suspect]
     Active Substance: DOCETAXEL
     Indication: Invasive breast carcinoma
  4. LETROZOLE [Suspect]
     Active Substance: LETROZOLE
     Indication: Hormone therapy
     Dosage: UNK
  5. EPIRUBICIN [Suspect]
     Active Substance: EPIRUBICIN
     Indication: Neoadjuvant therapy
     Dosage: UNK
  6. EPIRUBICIN [Suspect]
     Active Substance: EPIRUBICIN
     Indication: Chemotherapy
     Dosage: UNK, 90 MG/M2
  7. PERTUZUMAB [Suspect]
     Active Substance: PERTUZUMAB
     Indication: Breast cancer
     Dosage: PERTUZUMAB SYSTEMIC THERAPY WAS INITIATED IN COMBINATION WITH TRASTUZUMAB AND DOCETAXEL FOR 5 MON
     Route: 065
  8. CYCLOPHOSPHAMIDE [Suspect]
     Active Substance: CYCLOPHOSPHAMIDE
     Indication: Neoadjuvant therapy
     Dosage: 600 MG/M2
  9. CYCLOPHOSPHAMIDE [Suspect]
     Active Substance: CYCLOPHOSPHAMIDE
     Indication: Chemotherapy
     Dosage: UNK
  10. CARBOPLATIN [Suspect]
     Active Substance: CARBOPLATIN
     Indication: Invasive breast carcinoma
     Dosage: UNK

REACTIONS (8)
  - Disease progression [Recovering/Resolving]
  - General physical condition abnormal [Unknown]
  - Dyspnoea at rest [Recovering/Resolving]
  - Fatigue [Recovering/Resolving]
  - General physical health deterioration [Recovering/Resolving]
  - Pleural effusion [Recovering/Resolving]
  - Pneumothorax [Recovering/Resolving]
  - Drug ineffective [Unknown]
